FAERS Safety Report 25771255 (Version 1)
Quarter: 2025Q3

REPORT INFORMATION
  Report Type: Spontaneous
  Country: US (occurrence: US)
  Receive Date: 20250908
  Receipt Date: 20250908
  Transmission Date: 20251020
  Serious: No
  Sender: DOMPE FARMACEUTICI
  Company Number: US-FARMAPROD-202504-1129

PATIENT
  Sex: Female
  Weight: 124.74 kg

DRUGS (20)
  1. OXERVATE [Suspect]
     Active Substance: CENEGERMIN-BKBJ
     Indication: Neurotrophic keratopathy
     Route: 047
     Dates: start: 20200610
  2. OXERVATE [Suspect]
     Active Substance: CENEGERMIN-BKBJ
     Dates: start: 20250210
  3. BUPROPION HYDROCHLORIDE [Concomitant]
     Active Substance: BUPROPION HYDROCHLORIDE
  4. CITRACAL + D3 [Concomitant]
  5. CLONAZEPAM [Concomitant]
     Active Substance: CLONAZEPAM
  6. PROPRANOLOL [Concomitant]
     Active Substance: PROPRANOLOL HYDROCHLORIDE
  7. IRON [Concomitant]
     Active Substance: IRON
  8. VITAMIN B1 [Concomitant]
     Active Substance: THIAMINE HYDROCHLORIDE
  9. HYDROXOCOBALAMIN [Concomitant]
     Active Substance: HYDROXOCOBALAMIN
  10. VITAMINS [Concomitant]
     Active Substance: VITAMINS
  11. DIVALPROEX SODIUM [Concomitant]
     Active Substance: DIVALPROEX SODIUM
  12. GABAPENTIN [Concomitant]
     Active Substance: GABAPENTIN
  13. BUTALBITAL-ACETAMINOPHEN-CAFFE [Concomitant]
  14. NEPAFENAC;PREDNISOLONE [Concomitant]
  15. LAMOTRIGINE [Concomitant]
     Active Substance: LAMOTRIGINE
  16. PREGABALIN [Concomitant]
     Active Substance: PREGABALIN
  17. PREGABALIN [Concomitant]
     Active Substance: PREGABALIN
  18. NALTREXONE HYDROCHLORIDE [Concomitant]
     Active Substance: NALTREXONE HYDROCHLORIDE
  19. SERTRALINE HYDROCHLORIDE [Concomitant]
     Active Substance: SERTRALINE HYDROCHLORIDE
  20. REXULTI [Concomitant]
     Active Substance: BREXPIPRAZOLE

REACTIONS (2)
  - Eye pain [Unknown]
  - Facial pain [Unknown]
